FAERS Safety Report 14092809 (Version 1)
Quarter: 2017Q4

REPORT INFORMATION
  Report Type: Report from Study
  Country: BR (occurrence: BR)
  Receive Date: 20171016
  Receipt Date: 20171016
  Transmission Date: 20180321
  Serious: Yes (Other)
  Sender: FDA-Public Use
  Company Number: BR-GLAXOSMITHKLINE-BR2017GSK157807

PATIENT

DRUGS (3)
  1. DICLOFENAC POTASSIUM. [Suspect]
     Active Substance: DICLOFENAC POTASSIUM
     Dosage: UNK
  2. DIOVAN [Suspect]
     Active Substance: VALSARTAN
  3. FORMOTEROL [Suspect]
     Active Substance: FORMOTEROL

REACTIONS (3)
  - Head discomfort [Unknown]
  - Neoplasm malignant [Unknown]
  - Malaise [Unknown]
